APPROVED DRUG PRODUCT: ORVATEN
Active Ingredient: MIDODRINE HYDROCHLORIDE
Strength: 10MG
Dosage Form/Route: TABLET;ORAL
Application: A076725 | Product #003 | TE Code: AB
Applicant: BEIJING YILING BIO-ENGINEERING TECHNOLOGY CO LTD
Approved: Nov 3, 2004 | RLD: No | RS: No | Type: RX